FAERS Safety Report 20553660 (Version 1)
Quarter: 2022Q1

REPORT INFORMATION
  Report Type: Other
  Country: CN (occurrence: CN)
  Receive Date: 20220304
  Receipt Date: 20220304
  Transmission Date: 20220423
  Serious: Yes (Other)
  Sender: FDA-Public Use
  Company Number: CN-GE HEALTHCARE-2022CSU001417

PATIENT
  Age: 50 Year
  Sex: Female
  Weight: 56 kg

DRUGS (7)
  1. OMNISCAN [Suspect]
     Active Substance: GADODIAMIDE
     Indication: Magnetic resonance imaging
     Dosage: 20 ML, SINGLE
     Route: 042
     Dates: start: 20220209, end: 20220209
  2. OMNISCAN [Suspect]
     Active Substance: GADODIAMIDE
     Indication: Haemangioma of liver
  3. GLYCINE\GLYCYRRHIZIN\METHIONINE [Suspect]
     Active Substance: GLYCINE\GLYCYRRHIZIN\METHIONINE
     Indication: Eczema
     Dosage: 50 MG, QD
     Route: 048
     Dates: start: 20220209, end: 20220214
  4. THALIDOMIDE [Suspect]
     Active Substance: THALIDOMIDE
     Indication: Eczema
     Dosage: 100 MG, QD
     Route: 048
     Dates: start: 20220209, end: 20220214
  5. HALOMETASONE [Concomitant]
     Active Substance: HALOMETASONE
     Indication: Seborrhoeic dermatitis
     Dosage: 0.15 GM, BID, FOR EXTERNAL USE
     Dates: start: 20220209, end: 20220225
  6. LORATADINE [Concomitant]
     Active Substance: LORATADINE
     Indication: Dermatitis allergic
     Dosage: 10 MG, QD
     Route: 048
     Dates: start: 20220209, end: 20220225
  7. LEVOCETIRIZINE HYDROCHLORIDE [Concomitant]
     Active Substance: LEVOCETIRIZINE HYDROCHLORIDE
     Indication: Dermatitis allergic
     Dosage: 5 MG, QD
     Route: 048
     Dates: start: 20220209, end: 20220225

REACTIONS (2)
  - Skin swelling [Recovering/Resolving]
  - Erythema [Recovering/Resolving]

NARRATIVE: CASE EVENT DATE: 20220212
